FAERS Safety Report 21702381 (Version 2)
Quarter: 2023Q1

REPORT INFORMATION
  Report Type: Spontaneous
  Country: JP (occurrence: JP)
  Receive Date: 20221208
  Receipt Date: 20230124
  Transmission Date: 20230417
  Serious: Yes (Other)
  Sender: FDA-Public Use
  Company Number: JP-AMGEN-JPNSP2022211318

PATIENT
  Sex: Male

DRUGS (1)
  1. BLINCYTO [Suspect]
     Active Substance: BLINATUMOMAB
     Indication: B precursor type acute leukaemia
     Dosage: 28 MICROGRAM
     Route: 040
     Dates: start: 20221114, end: 20221115

REACTIONS (1)
  - Transformation to acute myeloid leukaemia [Recovered/Resolved]

NARRATIVE: CASE EVENT DATE: 20221114
